FAERS Safety Report 6531848-5 (Version None)
Quarter: 2010Q1

REPORT INFORMATION
  Report Type: 
  Country: None (occurrence: None)
  Receive Date: 20100108
  Receipt Date: 20091230
  Transmission Date: 20100710
  Serious: Yes (Other)
  Sender: FDA-Public Use
  Company Number: US-JNJFOC-20091004483

PATIENT
  Sex: Male
  Weight: 9.53 kg

DRUGS (4)
  1. TYLENOL (CAPLET) [Suspect]
     Route: 048
  2. TYLENOL (CAPLET) [Suspect]
     Indication: PYREXIA
     Route: 048
  3. INFANTS MOTRIN [Concomitant]
     Indication: PYREXIA
     Route: 048
  4. AMOXICILLIN [Concomitant]
     Indication: TONSILLITIS
     Route: 048

REACTIONS (2)
  - PYREXIA [None]
  - TRANSMISSION OF AN INFECTIOUS AGENT VIA A MEDICINAL PRODUCT [None]
